FAERS Safety Report 23525681 (Version 1)
Quarter: 2024Q1

REPORT INFORMATION
  Report Type: Spontaneous
  Country: TR (occurrence: TR)
  Receive Date: 20240215
  Receipt Date: 20240215
  Transmission Date: 20240410
  Serious: Yes (Hospitalization)
  Sender: FDA-Public Use
  Company Number: TR-China IPSEN SC-2024-02538

PATIENT
  Age: 31 Year
  Sex: Male
  Weight: 82 kg

DRUGS (2)
  1. DYSPORT [Suspect]
     Active Substance: ABOBOTULINUMTOXINA
     Indication: Hyperhidrosis
     Dosage: 500 IU
     Route: 065
     Dates: start: 20231226, end: 20231226
  2. DYSPORT [Suspect]
     Active Substance: ABOBOTULINUMTOXINA
     Indication: Off label use
     Dosage: 200 IU
     Route: 065
     Dates: start: 20240102, end: 20240102

REACTIONS (5)
  - Dysphagia [Recovered/Resolved]
  - Bradyphrenia [Recovered/Resolved]
  - Bradykinesia [Recovered/Resolved]
  - Off label use [Unknown]
  - Off label use [Unknown]

NARRATIVE: CASE EVENT DATE: 20231226
